FAERS Safety Report 11269545 (Version 2)
Quarter: 2015Q3

REPORT INFORMATION
  Report Type: Spontaneous
  Country: JP (occurrence: JP)
  Receive Date: 20150714
  Receipt Date: 20150720
  Transmission Date: 20151125
  Serious: Yes (Death)
  Sender: FDA-Public Use
  Company Number: JP-ELI_LILLY_AND_COMPANY-JP201507003304

PATIENT
  Age: 79 Year
  Sex: Female

DRUGS (6)
  1. FORTEO [Suspect]
     Active Substance: TERIPARATIDE
     Indication: OSTEOPOROSIS
     Dosage: 20 UG, QD
     Route: 058
     Dates: start: 20150306
  2. VITAMINS NOS [Concomitant]
     Active Substance: VITAMINS
     Indication: LUMBAR SPINAL STENOSIS
     Dosage: 5 UG, TID
     Route: 048
     Dates: start: 20130930
  3. GLIMEPIRIDE. [Concomitant]
     Active Substance: GLIMEPIRIDE
     Dosage: UNK
  4. LIPITOR [Concomitant]
     Active Substance: ATORVASTATIN CALCIUM
     Indication: HYPERLIPIDAEMIA
     Dosage: 10 UG, QD
     Route: 048
  5. DIART [Concomitant]
     Active Substance: AZOSEMIDE
     Dosage: UNK
  6. NESINA [Concomitant]
     Active Substance: ALOGLIPTIN BENZOATE
     Indication: DIABETES MELLITUS
     Dosage: 25 MG, QD
     Route: 048
     Dates: start: 2006

REACTIONS (2)
  - Death [Fatal]
  - Abdominal pain [Unknown]

NARRATIVE: CASE EVENT DATE: 20150614
